FAERS Safety Report 16645480 (Version 2)
Quarter: 2019Q3

REPORT INFORMATION
  Report Type: Report from Study
  Country: None (occurrence: SE)
  Receive Date: 20190730
  Receipt Date: 20190805
  Transmission Date: 20191004
  Serious: Yes (Hospitalization)
  Sender: FDA-Public Use
  Company Number: SE-ABBVIE-19K-150-2863841-00

PATIENT
  Age: 75 Year
  Sex: Male
  Weight: 68 kg

DRUGS (4)
  1. DUODOPA [Suspect]
     Active Substance: CARBIDOPA\LEVODOPA
     Indication: PARKINSON^S DISEASE
     Route: 050
     Dates: start: 20160516
  2. DUODOPA [Suspect]
     Active Substance: CARBIDOPA\LEVODOPA
     Route: 050
     Dates: start: 20160531
  3. MIRTAZAPIN [Concomitant]
     Active Substance: MIRTAZAPINE
     Indication: PRODUCT USED FOR UNKNOWN INDICATION
     Dosage: STARTED A LONG TIME AGO
     Route: 048
  4. CITALOPRAM [Concomitant]
     Active Substance: CITALOPRAM HYDROBROMIDE
     Indication: PRODUCT USED FOR UNKNOWN INDICATION
     Dosage: STARTED A LONG TIME AGO
     Route: 048

REACTIONS (15)
  - Fatigue [Unknown]
  - Nephrolithiasis [Not Recovered/Not Resolved]
  - Intentional product misuse [Recovered/Resolved]
  - Bladder disorder [Unknown]
  - Asthenia [Not Recovered/Not Resolved]
  - Confusional state [Unknown]
  - Infection [Not Recovered/Not Resolved]
  - Device difficult to use [Recovered/Resolved]
  - General physical health deterioration [Unknown]
  - Incoherent [Unknown]
  - Gait disturbance [Unknown]
  - Decreased appetite [Unknown]
  - Urinary tract infection [Recovering/Resolving]
  - C-reactive protein increased [Unknown]
  - Weight decreased [Recovering/Resolving]

NARRATIVE: CASE EVENT DATE: 2019
